FAERS Safety Report 15717419 (Version 1)
Quarter: 2018Q4

REPORT INFORMATION
  Report Type: Spontaneous
  Country: TR (occurrence: TR)
  Receive Date: 20181213
  Receipt Date: 20181213
  Transmission Date: 20190205
  Serious: No
  Sender: FDA-Public Use
  Company Number: TR-BIO PRODUCTS LABORATORY LTD-2060124

PATIENT
  Age: 16 Year
  Sex: Male

DRUGS (2)
  1. NONSTEROIDAL ANTI-INFLAMMATORY THERAPY [Concomitant]
  2. GENERIC IVIG [Suspect]
     Active Substance: HUMAN IMMUNOGLOBULIN G
     Indication: MYOCARDITIS
     Route: 042

REACTIONS (1)
  - Off label use [Unknown]
